FAERS Safety Report 16608035 (Version 1)
Quarter: 2019Q3

REPORT INFORMATION
  Report Type: Spontaneous
  Country: US (occurrence: US)
  Receive Date: 20190719
  Receipt Date: 20190719
  Transmission Date: 20191004
  Serious: Yes (Life-Threatening, Hospitalization)
  Sender: FDA-Public Use
  Company Number: None

PATIENT
  Age: 27 Year
  Sex: Female

DRUGS (1)
  1. KRATOM [Suspect]
     Active Substance: HERBALS\MITRAGYNINE
     Route: 048

REACTIONS (5)
  - Transaminases increased [None]
  - Nausea [None]
  - Vomiting [None]
  - Blood creatine phosphokinase increased [None]
  - Abdominal pain [None]

NARRATIVE: CASE EVENT DATE: 20190621
